FAERS Safety Report 7807892-4 (Version None)
Quarter: 2011Q4

REPORT INFORMATION
  Report Type: 
  Country: None (occurrence: None)
  Receive Date: 20111011
  Receipt Date: 20110926
  Transmission Date: 20120403
  Serious: Yes (Life-Threatening, Hospitalization)
  Sender: FDA-Public Use
  Company Number: PT-WATSON-2011-15955

PATIENT
  Age: 3 Year
  Sex: Male

DRUGS (1)
  1. PREDNISOLONE [Suspect]
     Indication: LINEAR IGA DISEASE
     Dosage: 2.0 MG/KG, DAILY
     Route: 048

REACTIONS (2)
  - TYPE 1 DIABETES MELLITUS [None]
  - KETOACIDOSIS [None]
